FAERS Safety Report 8827912 (Version 1)
Quarter: 2012Q4

REPORT INFORMATION
  Report Type: 
  Country: US (occurrence: US)
  Receive Date: 20121008
  Receipt Date: 20121008
  Transmission Date: 20130627
  Serious: No
  Sender: FDA-Public Use
  Company Number: US-TEVA-355874USA

PATIENT
  Sex: Female

DRUGS (2)
  1. ACTIQ [Suspect]
     Indication: ARTERIOSCLEROSIS
  2. ACTIQ [Suspect]
     Indication: INTESTINAL ISCHAEMIA

REACTIONS (1)
  - Off label use [Unknown]
